FAERS Safety Report 14849208 (Version 2)
Quarter: 2018Q2

REPORT INFORMATION
  Report Type: Spontaneous
  Country: PT (occurrence: PT)
  Receive Date: 20180504
  Receipt Date: 20180514
  Transmission Date: 20180711
  Serious: Yes (Other)
  Sender: FDA-Public Use
  Company Number: PT-IMPAX LABORATORIES, INC-2018-IPXL-01465

PATIENT
  Age: 68 Year
  Sex: Male

DRUGS (4)
  1. HYDROCORTISONE. [Suspect]
     Active Substance: HYDROCORTISONE
     Indication: HYPOPITUITARISM
     Dosage: 20 MG, DAILY
     Route: 065
  2. HYDROCORTISONE. [Suspect]
     Active Substance: HYDROCORTISONE
     Dosage: 30 MG, DAILY
     Route: 065
  3. LEVOTHYROXINE. [Suspect]
     Active Substance: LEVOTHYROXINE
     Indication: HYPOPITUITARISM
     Dosage: 25 ?G, DAILY
     Route: 065
  4. LEVOTHYROXINE. [Suspect]
     Active Substance: LEVOTHYROXINE
     Dosage: 75 ?G, DAILY
     Route: 065

REACTIONS (5)
  - Plasma cell myeloma [Recovering/Resolving]
  - Procedural haemorrhage [Unknown]
  - Varicella zoster virus infection [Unknown]
  - Fatigue [Unknown]
  - Candida infection [Unknown]
